FAERS Safety Report 16395850 (Version 3)
Quarter: 2019Q4

REPORT INFORMATION
  Report Type: Spontaneous
  Country: DE (occurrence: DE)
  Receive Date: 20190605
  Receipt Date: 20191021
  Transmission Date: 20200122
  Serious: Yes (Hospitalization, Other)
  Sender: FDA-Public Use
  Company Number: DE-ELI_LILLY_AND_COMPANY-DE201905013843

PATIENT
  Sex: Female

DRUGS (5)
  1. OLUMIANT [Suspect]
     Active Substance: BARICITINIB
     Indication: RHEUMATIC DISORDER
     Dosage: 4 MG, UNKNOWN
     Route: 065
  2. OLUMIANT [Suspect]
     Active Substance: BARICITINIB
     Indication: POLYARTHRITIS
     Dosage: 4 MG, UNKNOWN
     Route: 065
     Dates: start: 201811, end: 201902
  3. PREDNISON [Concomitant]
     Active Substance: PREDNISONE
     Indication: PRODUCT USED FOR UNKNOWN INDICATION
     Route: 065
  4. CORTISONE [Concomitant]
     Active Substance: CORTISONE
     Dosage: 2.5 DOSAGE FORM
     Route: 065
  5. CORTISONE [Concomitant]
     Active Substance: CORTISONE
     Indication: POLYARTHRITIS
     Dosage: UNK, UNKNOWN
     Route: 065

REACTIONS (9)
  - Respiratory distress [Unknown]
  - Deafness unilateral [Unknown]
  - Bronchitis [Unknown]
  - Bronchitis bacterial [Recovered/Resolved]
  - Angina pectoris [Unknown]
  - Respiratory tract infection [Recovering/Resolving]
  - Tinnitus [Unknown]
  - Oropharyngeal pain [Unknown]
  - Otitis media [Recovering/Resolving]

NARRATIVE: CASE EVENT DATE: 201902
